FAERS Safety Report 21334836 (Version 1)
Quarter: 2022Q3

REPORT INFORMATION
  Report Type: Spontaneous
  Country: US (occurrence: US)
  Receive Date: 20220914
  Receipt Date: 20220914
  Transmission Date: 20221027
  Serious: No
  Sender: FDA-Public Use
  Company Number: US-PADAGIS-21US032721

PATIENT

DRUGS (2)
  1. TESTOSTERONE CYPIONATE [Suspect]
     Active Substance: TESTOSTERONE CYPIONATE
     Indication: Blood testosterone decreased
     Dosage: 200 MG, WEEKLY
     Route: 030
     Dates: start: 201406, end: 20211217
  2. TESTOSTERONE CYPIONATE [Suspect]
     Active Substance: TESTOSTERONE CYPIONATE
     Dosage: UNK
     Route: 065

REACTIONS (6)
  - Fatigue [Recovering/Resolving]
  - Asthenia [Unknown]
  - Pain [Unknown]
  - Nausea [Unknown]
  - Headache [Recovering/Resolving]
  - Therapeutic product effect decreased [Unknown]

NARRATIVE: CASE EVENT DATE: 20211001
